FAERS Safety Report 9247623 (Version 1)
Quarter: 2013Q2

REPORT INFORMATION
  Report Type: Spontaneous
  Country: CO (occurrence: CO)
  Receive Date: 20130423
  Receipt Date: 20130423
  Transmission Date: 20140414
  Serious: Yes (Death, Other)
  Sender: FDA-Public Use
  Company Number: CO-PFIZER INC-2013123693

PATIENT
  Age: 99 Year
  Sex: Female

DRUGS (2)
  1. PRISTIQ [Suspect]
     Indication: DEPRESSED MOOD
     Dosage: 50 MG, 1X/DAY
     Route: 048
     Dates: start: 20130402, end: 20130412
  2. LANSOPRAZOLE [Concomitant]
     Indication: GASTRITIS
     Dosage: 30 MG, 1X/DAY
     Route: 048
     Dates: start: 2010, end: 20130413

REACTIONS (1)
  - Intestinal haemorrhage [Fatal]
